FAERS Safety Report 5337192-6 (Version None)
Quarter: 2007Q2

REPORT INFORMATION
  Report Type: 
  Country: None (occurrence: None)
  Receive Date: 20070315
  Receipt Date: 20061003
  Transmission Date: 20071010
  Serious: Yes (Life-Threatening, Hospitalization)
  Sender: FDA-Public Use
  Company Number: PHEH2006US11727

PATIENT
  Age: 3 Year
  Sex: Male

DRUGS (3)
  1. TRILEPTAL [Suspect]
     Indication: PARTIAL SEIZURES
     Dosage: 300 MG, BID, ORAL
     Route: 048
     Dates: start: 20041011, end: 20060610
  2. DEPAKOTE [Concomitant]
  3. LAMICTAL [Concomitant]

REACTIONS (2)
  - HYPONATRAEMIA [None]
  - STATUS EPILEPTICUS [None]
